FAERS Safety Report 12215368 (Version 2)
Quarter: 2019Q3

REPORT INFORMATION
  Report Type: Report from Study
  Country: CA (occurrence: CA)
  Receive Date: 20160328
  Receipt Date: 20190813
  Transmission Date: 20191004
  Serious: Yes (Death, Other)
  Sender: FDA-Public Use
  Company Number: CA-JNJFOC-20160322550

PATIENT
  Age: 59 Year
  Sex: Male
  Weight: 93.1 kg

DRUGS (3)
  1. REMICADE [Suspect]
     Active Substance: INFLIXIMAB
     Route: 042
     Dates: start: 20130403
  2. REMICADE [Suspect]
     Active Substance: INFLIXIMAB
     Indication: CROHN^S DISEASE
     Route: 042
     Dates: start: 20130318
  3. REMICADE [Suspect]
     Active Substance: INFLIXIMAB
     Route: 042
     Dates: start: 20160323

REACTIONS (7)
  - Lung carcinoma cell type unspecified stage IV [Recovering/Resolving]
  - Product use issue [Unknown]
  - Pain [Recovering/Resolving]
  - Off label use [Unknown]
  - Neoplasm malignant [Recovering/Resolving]
  - Abdominal pain [Unknown]
  - Death [Fatal]

NARRATIVE: CASE EVENT DATE: 20130403
